FAERS Safety Report 9012964 (Version 2)
Quarter: 2013Q4

REPORT INFORMATION
  Report Type: Report from Study
  Country: FR (occurrence: FR)
  Receive Date: 20130114
  Receipt Date: 20131230
  Transmission Date: 20140711
  Serious: Yes (Hospitalization)
  Sender: FDA-Public Use
  Company Number: FR-GLAXOSMITHKLINE-B0858221A

PATIENT
  Age: 58 Year
  Sex: Male
  Weight: 86 kg

DRUGS (4)
  1. PAZOPANIB [Suspect]
     Indication: GASTROINTESTINAL STROMAL TUMOUR
     Dosage: 800MG PER DAY
     Route: 048
     Dates: start: 20121217
  2. FLUDROCORTISONE [Concomitant]
     Indication: ADDISON^S DISEASE
     Dosage: 50MG PER DAY
     Dates: start: 1994
  3. HYDROCORTISONE [Concomitant]
     Indication: ADDISON^S DISEASE
     Dosage: 40MG PER DAY
     Dates: start: 1994
  4. MICARDIS [Concomitant]
     Indication: HYPERTENSION
     Dates: start: 1994

REACTIONS (1)
  - General physical health deterioration [Unknown]
